FAERS Safety Report 19003488 (Version 2)
Quarter: 2021Q2

REPORT INFORMATION
  Report Type: Spontaneous
  Country: US (occurrence: US)
  Receive Date: 20210312
  Receipt Date: 20210405
  Transmission Date: 20210717
  Serious: Yes (Other)
  Sender: FDA-Public Use
  Company Number: US-GLENMARK PHARMACEUTICALS-2021GMK052653

PATIENT

DRUGS (2)
  1. FLUCONAZOLE. [Suspect]
     Active Substance: FLUCONAZOLE
     Indication: VULVOVAGINAL MYCOTIC INFECTION
     Dosage: 150 MILLIGRAM, SINGLE
     Route: 048
     Dates: start: 20200807
  2. FLUCONAZOLE. [Suspect]
     Active Substance: FLUCONAZOLE
     Dosage: 150 MILLIGRAM, SINGLE
     Route: 048
     Dates: start: 20201230

REACTIONS (5)
  - Fixed eruption [Recovering/Resolving]
  - Urticaria [Recovering/Resolving]
  - Skin discolouration [Unknown]
  - Swollen tongue [Recovering/Resolving]
  - Product substitution issue [Unknown]

NARRATIVE: CASE EVENT DATE: 202008
